FAERS Safety Report 7008519-4 (Version None)
Quarter: 2010Q3

REPORT INFORMATION
  Report Type: 
  Country: None (occurrence: None)
  Receive Date: 20100922
  Receipt Date: 20100917
  Transmission Date: 20110219
  Serious: No
  Sender: FDA-Public Use
  Company Number: US-PFIZER INC-2010118170

PATIENT
  Sex: Female
  Weight: 104.31 kg

DRUGS (2)
  1. CHANTIX [Suspect]
     Indication: SMOKING CESSATION THERAPY
     Dosage: 0.5 MG, 1X/DAY
     Route: 048
     Dates: start: 20100915
  2. ADVIL LIQUI-GELS [Concomitant]
     Indication: SINUSITIS
     Dosage: UNK

REACTIONS (5)
  - COUGH [None]
  - INSOMNIA [None]
  - LUNG DISORDER [None]
  - NASAL CONGESTION [None]
  - SINUSITIS [None]
